FAERS Safety Report 8398141-X (Version None)
Quarter: 2012Q2

REPORT INFORMATION
  Report Type: 
  Country: None (occurrence: None)
  Receive Date: 20120531
  Receipt Date: 20120525
  Transmission Date: 20120825
  Serious: Yes (Disabling)
  Sender: FDA-Public Use
  Company Number: PHHY2012GB002333

PATIENT
  Age: 68 Year
  Sex: Male
  Weight: 81 kg

DRUGS (6)
  1. CITALOPRAM [Concomitant]
     Dosage: UNK UKN, UNK
     Dates: start: 20110914, end: 20111223
  2. LOCERYL [Concomitant]
     Dosage: UNK UKN, UNK
     Dates: start: 20110706, end: 20111119
  3. SIMVASTATIN [Concomitant]
     Dosage: UNK UKN, UNK
     Dates: start: 20111109
  4. TIMOLOL MALEATE [Concomitant]
     Dosage: UNK UKN, UNK
     Dates: start: 20111220
  5. MIRTAZAPINE [Suspect]
     Indication: DEPRESSION
     Dosage: 15 MG, QD
     Dates: start: 20111230, end: 20111231
  6. ASACOL [Concomitant]
     Dosage: UNK UKN, UNK
     Dates: start: 20110912

REACTIONS (6)
  - POLLAKIURIA [None]
  - MUSCLE TWITCHING [None]
  - HEADACHE [None]
  - DYSURIA [None]
  - NOCTURIA [None]
  - DIZZINESS [None]
